FAERS Safety Report 6056239-5 (Version None)
Quarter: 2009Q1

REPORT INFORMATION
  Report Type: 
  Country: None (occurrence: None)
  Receive Date: 20090123
  Receipt Date: 20090123
  Transmission Date: 20090719
  Serious: Yes (Other)
  Sender: FDA-Public Use
  Company Number: None

PATIENT
  Age: 25 Year
  Sex: Female
  Weight: 62.1428 kg

DRUGS (1)
  1. BUDEPRION SR 150 MG TEVA USA [Suspect]
     Indication: DEPRESSION
     Dosage: 150MG 1XDAY PO
     Route: 048
     Dates: start: 20090120, end: 20090121

REACTIONS (7)
  - CATATONIA [None]
  - CONVULSION [None]
  - HEART RATE INCREASED [None]
  - MUSCLE SPASMS [None]
  - PARAESTHESIA [None]
  - PRODUCT QUALITY ISSUE [None]
  - SYNCOPE [None]
